FAERS Safety Report 15313675 (Version 1)
Quarter: 2018Q3

REPORT INFORMATION
  Report Type: Spontaneous
  Country: GR (occurrence: GR)
  Receive Date: 20180824
  Receipt Date: 20180824
  Transmission Date: 20181010
  Serious: Yes (Other)
  Sender: FDA-Public Use
  Company Number: GR-ROCHE-2170580

PATIENT
  Sex: Female
  Weight: 57 kg

DRUGS (4)
  1. AVASTIN [Suspect]
     Active Substance: BEVACIZUMAB
     Indication: OVARIAN CANCER METASTATIC
     Route: 065
     Dates: start: 201710
  2. AVASTIN [Suspect]
     Active Substance: BEVACIZUMAB
     Dosage: MONOTHERAPY (AVASTIN ONLY); 1 CYCLE EVERY 3 WEEKS ;ONGOING: NO
     Route: 065
     Dates: start: 201801, end: 20180615
  3. CARBOPLATIN. [Concomitant]
     Active Substance: CARBOPLATIN
     Indication: OVARIAN CANCER METASTATIC
     Dosage: 1 CYCLE EVERY 3 WEEKS
     Route: 065
     Dates: start: 201710
  4. TAXOL [Concomitant]
     Active Substance: PACLITAXEL
     Indication: OVARIAN CANCER METASTATIC
     Dosage: 1 CYCLE EVERY 3 WEEKS
     Route: 065
     Dates: start: 201710

REACTIONS (7)
  - Proteinuria [Recovering/Resolving]
  - Hypertension [Recovered/Resolved]
  - Nerve injury [Unknown]
  - Protein total increased [Recovering/Resolving]
  - Neuropathy peripheral [Recovering/Resolving]
  - Headache [Recovered/Resolved]
  - Head discomfort [Unknown]

NARRATIVE: CASE EVENT DATE: 2018
